FAERS Safety Report 22044219 (Version 1)
Quarter: 2023Q1

REPORT INFORMATION
  Report Type: Spontaneous
  Country: HK (occurrence: HK)
  Receive Date: 20230228
  Receipt Date: 20230228
  Transmission Date: 20230417
  Serious: Yes (Hospitalization)
  Sender: FDA-Public Use
  Company Number: HK-PFIZER INC-PV202300034224

PATIENT
  Age: 45 Year
  Sex: Female

DRUGS (4)
  1. DEFEROXAMINE MESYLATE [Suspect]
     Active Substance: DEFEROXAMINE MESYLATE
     Indication: Iron overload
     Dosage: UNK
     Route: 042
     Dates: end: 202002
  2. DEFEROXAMINE MESYLATE [Suspect]
     Active Substance: DEFEROXAMINE MESYLATE
     Dosage: UNK
     Route: 058
     Dates: start: 202105
  3. DEFEROXAMINE MESYLATE [Suspect]
     Active Substance: DEFEROXAMINE MESYLATE
     Dosage: OVER 8 HOURS, 5 DAYS PER WEEK FOR ABOUT 3-4 MONTHS
     Route: 042
  4. DEFERASIROX [Suspect]
     Active Substance: DEFERASIROX
     Indication: Iron overload
     Dosage: UNK
     Route: 048

REACTIONS (2)
  - Liver abscess [Recovered/Resolved]
  - Klebsiella infection [Recovered/Resolved]
